FAERS Safety Report 13151317 (Version 1)
Quarter: 2017Q1

REPORT INFORMATION
  Report Type: Spontaneous
  Country: US (occurrence: US)
  Receive Date: 20170122
  Receipt Date: 20170122
  Transmission Date: 20170428
  Serious: Yes (Other)
  Sender: FDA-Public Use
  Company Number: None

PATIENT
  Age: 78 Year
  Sex: Male
  Weight: 77.8 kg

DRUGS (7)
  1. RAPAFLO [Concomitant]
     Active Substance: SILODOSIN
  2. BISTOLIC [Concomitant]
  3. SYMVASTATIN [Concomitant]
  4. PROTANDIM [Concomitant]
     Active Substance: DIETARY SUPPLEMENT
  5. GEODON [Suspect]
     Active Substance: ZIPRASIDONE HYDROCHLORIDE\ZIPRASIDONE MESYLATE
     Indication: PRODUCT USED FOR UNKNOWN INDICATION
     Dosage: 2 INJECTION(S);OTHER FREQUENCY:EVERY 30 MIN;?
     Route: 030
     Dates: start: 20170119, end: 20170119
  6. LISINOPRIL. [Concomitant]
     Active Substance: LISINOPRIL
  7. DEXILANT [Concomitant]
     Active Substance: DEXLANSOPRAZOLE

REACTIONS (6)
  - Agitation [None]
  - Dysuria [None]
  - Diarrhoea [None]
  - Cognitive disorder [None]
  - Somnolence [None]
  - Altered state of consciousness [None]

NARRATIVE: CASE EVENT DATE: 20170119
